FAERS Safety Report 7025277-8 (Version None)
Quarter: 2010Q4

REPORT INFORMATION
  Report Type: 
  Country: None (occurrence: None)
  Receive Date: 20101001
  Receipt Date: 20100921
  Transmission Date: 20110411
  Serious: Yes (Hospitalization)
  Sender: FDA-Public Use
  Company Number: US-PFIZER INC-2010118985

PATIENT
  Sex: Female
  Weight: 84.807 kg

DRUGS (3)
  1. VARENICLINE TARTRATE [Suspect]
     Indication: SMOKING CESSATION THERAPY
     Dosage: 1.0 MG, 2X/DAY
     Dates: start: 20100622, end: 20100917
  2. RISPERIDONE [Concomitant]
     Dosage: 4 MG, UNK
     Dates: start: 20070101
  3. LISINOPRIL [Concomitant]
     Dosage: 40 MG, UNK
     Dates: start: 20080101

REACTIONS (3)
  - GASTRIC ULCER [None]
  - GASTRITIS [None]
  - HIATUS HERNIA [None]
